FAERS Safety Report 5227343-6 (Version None)
Quarter: 2007Q1

REPORT INFORMATION
  Report Type: 
  Country: None (occurrence: None)
  Receive Date: 20070202
  Receipt Date: 20070123
  Transmission Date: 20070707
  Serious: Yes (Other)
  Sender: FDA-Public Use
  Company Number: JP-MERCK-0701USA04658

PATIENT
  Age: 58 Year
  Sex: Female

DRUGS (1)
  1. HYZAAR [Suspect]
     Indication: HYPERTENSION
     Route: 048
     Dates: start: 20061209, end: 20070122

REACTIONS (4)
  - FACE OEDEMA [None]
  - LOCAL SWELLING [None]
  - OEDEMA PERIPHERAL [None]
  - RASH VESICULAR [None]
